FAERS Safety Report 15858277 (Version 2)
Quarter: 2020Q3

REPORT INFORMATION
  Report Type: Spontaneous
  Country: HR (occurrence: HR)
  Receive Date: 20190123
  Receipt Date: 20200914
  Transmission Date: 20201102
  Serious: Yes (Other)
  Sender: FDA-Public Use
  Company Number: HR-VIFOR (INTERNATIONAL) INC.-VIT-2019-00481

PATIENT
  Age: 78 Year
  Sex: Female
  Weight: 65 kg

DRUGS (31)
  1. BINOCRIT [Concomitant]
     Active Substance: ERYTHROPOIETIN
     Dosage: 4000+2000+4000 IU
     Route: 042
     Dates: start: 20190123
  2. RENVELA [Concomitant]
     Active Substance: SEVELAMER CARBONATE
     Dates: start: 20180910
  3. VENOFER [Suspect]
     Active Substance: IRON SUCROSE
     Route: 042
     Dates: start: 20181116
  4. ARIMIDEX [Concomitant]
     Active Substance: ANASTROZOLE
     Dosage: 1X1 MG
     Dates: start: 20180609
  5. NEPRO HP [Concomitant]
     Dates: start: 20180820
  6. KLAVOCIN B [Concomitant]
     Dates: start: 20190111, end: 20190114
  7. SUMAMED [Concomitant]
     Active Substance: AZITHROMYCIN ANHYDROUS
     Dates: start: 20190130
  8. RENVELA [Concomitant]
     Active Substance: SEVELAMER CARBONATE
     Dates: start: 20181015
  9. VELPHORO [Suspect]
     Active Substance: SUCROFERRIC OXYHYDROXIDE
     Route: 048
     Dates: start: 20181201, end: 20181212
  10. BINOCRIT [Concomitant]
     Active Substance: ERYTHROPOIETIN
     Dosage: 4000+2000+2000 IU
     Dates: start: 20181010
  11. PREXANIL [Concomitant]
     Active Substance: PERINDOPRIL
     Dates: start: 20190123
  12. LACIPIL [Concomitant]
     Active Substance: LACIDIPINE
  13. RENVELA [Concomitant]
     Active Substance: SEVELAMER CARBONATE
     Dates: start: 20181201
  14. CONCOR [Concomitant]
     Active Substance: BISOPROLOL FUMARATE
  15. ZEMPLAR [Concomitant]
     Active Substance: PARICALCITOL
  16. ZEMPLAR [Concomitant]
     Active Substance: PARICALCITOL
     Dates: start: 20180820
  17. RENVELA [Concomitant]
     Active Substance: SEVELAMER CARBONATE
  18. VELPHORO [Suspect]
     Active Substance: SUCROFERRIC OXYHYDROXIDE
     Indication: HYPERPHOSPHATAEMIA
     Route: 048
     Dates: start: 20180907
  19. VELPHORO [Suspect]
     Active Substance: SUCROFERRIC OXYHYDROXIDE
     Route: 048
     Dates: end: 20190114
  20. LACIPIL [Concomitant]
     Active Substance: LACIDIPINE
     Dates: start: 20180521
  21. KLAVOCIN B [Concomitant]
     Dates: start: 20190104, end: 20190106
  22. VELPHORO [Suspect]
     Active Substance: SUCROFERRIC OXYHYDROXIDE
     Route: 048
     Dates: start: 20180910
  23. ASTAX [Concomitant]
  24. FOLACIN [Concomitant]
  25. EBRANTIL [Concomitant]
     Active Substance: URAPIDIL
     Dates: start: 20180820
  26. AVELOX [Concomitant]
     Active Substance: MOXIFLOXACIN HYDROCHLORIDE
     Dates: start: 20190114, end: 20190123
  27. RENVELA [Concomitant]
     Active Substance: SEVELAMER CARBONATE
     Dosage: TERMINATING DOSE FOR LUNCH CONTINUING MORNING AND EVENING DOSAGE UNTIL INTRODUCTION OF 7 TABLETS
     Dates: start: 20180427
  28. RENVELA [Concomitant]
     Active Substance: SEVELAMER CARBONATE
     Dates: start: 20181212
  29. BELODIN [Concomitant]
     Dates: start: 20181224
  30. FERLECIT [Concomitant]
  31. EDEMID F [Concomitant]
     Dates: start: 20190128

REACTIONS (2)
  - Diarrhoea [Recovered/Resolved]
  - Pruritus [Recovered/Resolved]

NARRATIVE: CASE EVENT DATE: 20180907
